FAERS Safety Report 7056157-X (Version None)
Quarter: 2010Q4

REPORT INFORMATION
  Report Type: 
  Country: None (occurrence: None)
  Receive Date: 20101021
  Receipt Date: 20101007
  Transmission Date: 20110411
  Serious: Yes (Hospitalization)
  Sender: FDA-Public Use
  Company Number: US-ELI_LILLY_AND_COMPANY-US201007005557

PATIENT
  Sex: Female

DRUGS (16)
  1. FORTEO [Suspect]
     Indication: OSTEOPOROSIS
     Dosage: 20 UG, DAILY (1/D)
     Route: 065
     Dates: start: 20090101
  2. COUMADIN [Concomitant]
     Dosage: UNK, DAILY (1/D)
     Route: 065
  3. TOPROL-XL [Concomitant]
     Dosage: 50 MG, 2/D
     Route: 065
  4. DIGOXIN [Concomitant]
     Dosage: 0.125 MG, 4/D
     Route: 065
  5. LISINOPRIL [Concomitant]
     Dosage: 40 MG, DAILY (1/D)
     Route: 065
  6. LASIX [Concomitant]
     Dosage: 40 MG, DAILY (1/D)
  7. TEKTURNA [Concomitant]
     Dosage: 300 MG, DAILY (1/D)
  8. ZOCOR [Concomitant]
     Dosage: UNK, DAILY (1/D)
  9. METHOTREXATE [Concomitant]
     Dosage: 10 MEQ, WEEKLY (1/W)
  10. LEFLUNOMIDE [Concomitant]
     Dosage: 20 MG, DAILY (1/D)
  11. FOLIC ACID [Concomitant]
     Dosage: 4 MG, DAILY (1/D)
  12. PREDNISONE [Concomitant]
     Dosage: 5 MG, AS NEEDED
  13. OMEPRAZOLE [Concomitant]
     Dosage: 40 MG, 2/D
  14. DARVOCET [Concomitant]
     Dosage: 100 MG, EVERY 4 HRS
  15. MULTI-VITAMIN [Concomitant]
     Dosage: UNK, DAILY (1/D)
     Route: 065
  16. CALCIUM CARBONATE W/VITAMIN D NOS [Concomitant]
     Dosage: 600 MG, 2/D
     Route: 065

REACTIONS (7)
  - DEMENTIA [None]
  - ENDOCARDITIS [None]
  - GASTROINTESTINAL HAEMORRHAGE [None]
  - GASTROINTESTINAL TUBE INSERTION [None]
  - MALAISE [None]
  - PRODUCT QUALITY ISSUE [None]
  - PYREXIA [None]
